FAERS Safety Report 13003839 (Version 1)
Quarter: 2016Q4

REPORT INFORMATION
  Report Type: Report from Study
  Country: CA (occurrence: CA)
  Receive Date: 20161206
  Receipt Date: 20161206
  Transmission Date: 20170207
  Serious: Yes (Other)
  Sender: FDA-Public Use
  Company Number: CA-GILEAD-2016-0239151

PATIENT
  Age: 62 Year
  Sex: Female

DRUGS (5)
  1. TRAZOLAM [Concomitant]
  2. LEDIPASVIR/SOFOSBUVIR [Suspect]
     Active Substance: LEDIPASVIR\SOFOSBUVIR
     Indication: CHRONIC HEPATITIS C
     Dosage: 1 DF, UNK
     Route: 048
  3. HYDROMORPHONE [Concomitant]
     Active Substance: HYDROMORPHONE
  4. CLONAZEPAM. [Concomitant]
     Active Substance: CLONAZEPAM
  5. RISEDRONATE [Concomitant]
     Active Substance: RISEDRONATE SODIUM

REACTIONS (1)
  - Respiratory tract infection bacterial [Unknown]

NARRATIVE: CASE EVENT DATE: 20161013
